FAERS Safety Report 9880758 (Version 1)
Quarter: 2014Q1

REPORT INFORMATION
  Report Type: Spontaneous
  Country: US (occurrence: US)
  Receive Date: 20140207
  Receipt Date: 20140207
  Transmission Date: 20141002
  Serious: No
  Sender: FDA-Public Use
  Company Number: US-PFIZER INC-2014031147

PATIENT
  Sex: Male

DRUGS (1)
  1. AZITHROMYCIN [Suspect]
     Dosage: UNK
     Route: 048

REACTIONS (5)
  - Mucous stools [Unknown]
  - Rash [Unknown]
  - Eczema [Unknown]
  - Vomiting [Unknown]
  - Diarrhoea [Unknown]
